FAERS Safety Report 9893427 (Version 3)
Quarter: 2015Q1

REPORT INFORMATION
  Report Type: Spontaneous
  Country: US (occurrence: US)
  Receive Date: 20140213
  Receipt Date: 20150112
  Transmission Date: 20150721
  Serious: Yes (Death, Life-Threatening, Hospitalization, Other)
  Sender: FDA-Public Use
  Company Number: US-009507513-1402USA005759

PATIENT
  Sex: Female

DRUGS (1)
  1. JANUVIA [Suspect]
     Active Substance: SITAGLIPTIN PHOSPHATE
     Indication: TYPE 2 DIABETES MELLITUS
     Dosage: 100 MG, QD
     Route: 048
     Dates: start: 20071108, end: 20091008

REACTIONS (12)
  - Insulin-requiring type 2 diabetes mellitus [Unknown]
  - Urinary tract infection [Unknown]
  - Acute hepatic failure [Fatal]
  - Acute coronary syndrome [Unknown]
  - Hypertension [Unknown]
  - Acute kidney injury [Fatal]
  - Metastases to liver [Unknown]
  - Thrombocytopenia [Unknown]
  - Chronic obstructive pulmonary disease [Unknown]
  - Blood cholesterol increased [Unknown]
  - Pancreatic carcinoma metastatic [Fatal]
  - Anaemia [Unknown]

NARRATIVE: CASE EVENT DATE: 20110129
